FAERS Safety Report 10056948 (Version 1)
Quarter: 2014Q2

REPORT INFORMATION
  Report Type: Spontaneous
  Country: US (occurrence: US)
  Receive Date: 20140403
  Receipt Date: 20140403
  Transmission Date: 20141212
  Serious: No
  Sender: FDA-Public Use
  Company Number: US-BAYER-2014-040797

PATIENT
  Age: 65 Year
  Sex: Male
  Weight: 79 kg

DRUGS (4)
  1. ALEVE GELCAPS [Suspect]
     Indication: MYALGIA
     Dosage: UNK UNK, PRN
     Route: 048
     Dates: start: 201403
  2. ALEVE LIQUID GELS [Suspect]
     Indication: MYALGIA
     Dosage: UNK UNK, PRN
     Route: 048
  3. LISINOPRIL [Concomitant]
  4. PREVACID [Concomitant]

REACTIONS (3)
  - Drug ineffective [None]
  - Drug ineffective [None]
  - Drug ineffective [None]
